FAERS Safety Report 8291477-2 (Version None)
Quarter: 2012Q2

REPORT INFORMATION
  Report Type: 
  Country: None (occurrence: None)
  Receive Date: 20120417
  Receipt Date: 20120410
  Transmission Date: 20120825
  Serious: Yes (Other)
  Sender: FDA-Public Use
  Company Number: FR-ABBOTT-12P-056-0925142-00

PATIENT
  Age: 73 Year
  Sex: Female

DRUGS (5)
  1. DEPAKENE [Suspect]
     Route: 048
     Dates: start: 20110718, end: 20110726
  2. DEPAKENE [Suspect]
     Route: 048
     Dates: start: 20110810, end: 20110906
  3. DEPAKOTE [Suspect]
     Indication: BIPOLAR DISORDER
     Dosage: TWICE A DAY (750 MG IN AM; 500 IN PM)
     Route: 048
     Dates: end: 20110519
  4. DEPAKENE [Suspect]
     Indication: BIPOLAR DISORDER
     Route: 048
     Dates: start: 20110519, end: 20110717
  5. DEPAKENE [Suspect]
     Route: 048
     Dates: start: 20110727, end: 20110809

REACTIONS (1)
  - ENCEPHALOPATHY [None]
